FAERS Safety Report 8586018-6 (Version None)
Quarter: 2012Q3

REPORT INFORMATION
  Report Type: 
  Country: None (occurrence: None)
  Receive Date: 20120810
  Receipt Date: 20120801
  Transmission Date: 20120928
  Serious: Yes (Death, Hospitalization)
  Sender: FDA-Public Use
  Company Number: US-ACTELION-A-US2012-67768

PATIENT
  Age: 66 Year
  Sex: Female

DRUGS (28)
  1. LANTUS [Concomitant]
  2. SIMVASTATIN [Concomitant]
  3. NEURONTIN [Concomitant]
  4. ACETAMINOPHEN [Concomitant]
  5. RESTORIL [Concomitant]
  6. MULTIVITAMIN [Concomitant]
  7. SINGULAIR [Concomitant]
  8. WARFARIN SODIUM [Concomitant]
  9. FUROSEMIDE [Concomitant]
  10. POTASSIUM CHLORIDE [Concomitant]
  11. ALBUTEROL [Concomitant]
  12. VITAMIN D [Concomitant]
  13. SPIRIVA [Concomitant]
  14. TRACLEER [Suspect]
     Indication: PULMONARY ARTERIAL HYPERTENSION
     Dosage: 62.5 MG, BID
     Route: 048
     Dates: end: 20120501
  15. REVATIO [Concomitant]
  16. FLEXERIL [Concomitant]
  17. SPIRONOLACTONE [Concomitant]
  18. OMEPRAZOLE [Concomitant]
  19. EFFEXOR [Concomitant]
  20. FLONASE [Concomitant]
  21. PROPAFENONE HCL [Concomitant]
  22. BUDESONIDE [Concomitant]
  23. IMODIUM [Concomitant]
  24. NOVOLOG [Concomitant]
  25. METOPROLOL TARTRATE [Concomitant]
  26. LISINOPRIL [Concomitant]
  27. HYDROCODONE BITARTRATE AND ACETAMINOPHEN [Concomitant]
  28. LORATADINE [Concomitant]

REACTIONS (13)
  - ARRHYTHMIA [None]
  - PULSE ABSENT [None]
  - BRADYCARDIA [None]
  - HYPOXIA [None]
  - CARDIAC ARREST [None]
  - HYPERKALAEMIA [None]
  - ATRIOVENTRICULAR BLOCK FIRST DEGREE [None]
  - RESPIRATORY ARREST [None]
  - RESPIRATORY ACIDOSIS [None]
  - RENAL FAILURE ACUTE [None]
  - ACUTE RESPIRATORY FAILURE [None]
  - HYPOVENTILATION [None]
  - FLUID OVERLOAD [None]
